FAERS Safety Report 4771050-0 (Version None)
Quarter: 2005Q3

REPORT INFORMATION
  Report Type: 
  Country: None (occurrence: None)
  Receive Date: 20050915
  Receipt Date: 20050901
  Transmission Date: 20060218
  Serious: Yes (Other)
  Sender: FDA-Public Use
  Company Number: SE-ABBOTT-05P-150-0310205-00

PATIENT
  Age: 41 Year
  Sex: Female

DRUGS (5)
  1. NORVIR [Suspect]
     Indication: HIV INFECTION
     Route: 048
     Dates: start: 20031006
  2. LAMIVUDINE [Suspect]
     Indication: HIV INFECTION
     Route: 048
     Dates: start: 20040708
  3. VIREAD [Suspect]
     Indication: HIV INFECTION
     Route: 048
     Dates: start: 20031006
  4. REYATAZ [Suspect]
     Indication: HIV INFECTION
     Route: 048
     Dates: start: 20031006
  5. ZOPICLONE [Concomitant]
     Indication: DRUG USE FOR UNKNOWN INDICATION
     Route: 048

REACTIONS (5)
  - ABORTION SPONTANEOUS [None]
  - BENIGN HYDATIDIFORM MOLE [None]
  - DRUG EXPOSURE DURING PREGNANCY [None]
  - PAIN [None]
  - VAGINAL DISCHARGE [None]
